FAERS Safety Report 4706258-3 (Version None)
Quarter: 2005Q2

REPORT INFORMATION
  Report Type: 
  Country: None (occurrence: None)
  Receive Date: 20050629
  Receipt Date: 20050419
  Transmission Date: 20051028
  Serious: No
  Sender: FDA-Public Use
  Company Number: 05P-163-0297883-00

PATIENT
  Age: 61 Year
  Sex: Female
  Weight: 56.6996 kg

DRUGS (6)
  1. HUMIRA [Suspect]
     Indication: RHEUMATOID ARTHRITIS
     Dosage: 40 MG, 1 IN 2 WK, SUBCUTANEOUS
     Route: 058
     Dates: start: 20041201
  2. METHOTREXATE [Concomitant]
  3. PREDNISONE TAB [Concomitant]
  4. SERTRALINE HYDROCHLORIDE [Concomitant]
  5. RABEPRAZOLE SODIUM [Concomitant]
  6. TRAMADOL HCL [Concomitant]

REACTIONS (1)
  - SINUS HEADACHE [None]
